FAERS Safety Report 23801352 (Version 2)
Quarter: 2025Q2

REPORT INFORMATION
  Report Type: Spontaneous
  Country: US (occurrence: US)
  Receive Date: 20240430
  Receipt Date: 20250521
  Transmission Date: 20250716
  Serious: No
  Sender: SANOFI AVENTIS
  Company Number: US-SA-SAC20240426001102

PATIENT
  Sex: Female
  Weight: 58 kg

DRUGS (8)
  1. DUPIXENT [Suspect]
     Active Substance: DUPILUMAB
     Indication: Dermatitis atopic
     Dosage: 300 MG, QOW
     Route: 058
     Dates: start: 20221207
  2. IBUPROFEN [Concomitant]
     Active Substance: IBUPROFEN
  3. DESONIDE [Concomitant]
     Active Substance: DESONIDE
  4. SYMBICORT [Concomitant]
     Active Substance: BUDESONIDE\FORMOTEROL FUMARATE DIHYDRATE
  5. VITAMINS NOS [Concomitant]
     Active Substance: VITAMINS
  6. SYMBICORT [Concomitant]
     Active Substance: BUDESONIDE\FORMOTEROL FUMARATE DIHYDRATE
  7. VITAMINS [Concomitant]
     Active Substance: VITAMINS
  8. DESONIDE [Concomitant]
     Active Substance: DESONIDE

REACTIONS (3)
  - Malaise [Unknown]
  - Illness [Unknown]
  - Maternal exposure during pregnancy [Unknown]
